FAERS Safety Report 4442931-2 (Version None)
Quarter: 2004Q3

REPORT INFORMATION
  Report Type: 
  Country: None (occurrence: None)
  Receive Date: 20040907
  Receipt Date: 20040907
  Transmission Date: 20050211
  Serious: Yes (Life-Threatening, Hospitalization, Disabling)
  Sender: FDA-Public Use
  Company Number: None

PATIENT
  Age: 57 Year
  Sex: Male
  Weight: 77.1115 kg

DRUGS (2)
  1. LITHIUM 900 MG/DAY VA LABEL [Suspect]
  2. ENALPRIL 10MG / TWICE DAILY VA LABEL [Suspect]

REACTIONS (8)
  - ABASIA [None]
  - BALANCE DISORDER [None]
  - COMA [None]
  - DYSARTHRIA [None]
  - PNEUMONIA [None]
  - SEPSIS [None]
  - SHOCK [None]
  - SINUS TACHYCARDIA [None]
